FAERS Safety Report 4765460-5 (Version None)
Quarter: 2005Q3

REPORT INFORMATION
  Report Type: 
  Country: None (occurrence: None)
  Receive Date: 20050908
  Receipt Date: 20050908
  Transmission Date: 20060218
  Serious: Yes (Hospitalization)
  Sender: FDA-Public Use
  Company Number: None

PATIENT
  Sex: Female
  Weight: 143 kg

DRUGS (4)
  1. PACLITAXEL [Suspect]
     Indication: OESOPHAGEAL CARCINOMA
     Dosage: SEE DESCRIPTION
     Dates: start: 20050815, end: 20050902
  2. CETUXIMAB [Suspect]
     Indication: OESOPHAGEAL CARCINOMA
     Dosage: SEE DESCRIPTION
     Dates: start: 20050815, end: 20050902
  3. CARBOPLATIN [Suspect]
     Indication: OESOPHAGEAL CARCINOMA
     Dates: start: 20050815, end: 20050902
  4. RADIATION [Suspect]
     Indication: OESOPHAGEAL CARCINOMA
     Dates: start: 20050815, end: 20050902

REACTIONS (5)
  - DEHYDRATION [None]
  - INFECTION [None]
  - NAUSEA [None]
  - NEUTROPENIA [None]
  - VOMITING [None]
